FAERS Safety Report 4923798-2 (Version None)
Quarter: 2006Q1

REPORT INFORMATION
  Report Type: 
  Country: None (occurrence: None)
  Receive Date: 20060227
  Receipt Date: 20030415
  Transmission Date: 20060701
  Serious: Yes (Death, Hospitalization, Other)
  Sender: FDA-Public Use
  Company Number: US-MERCK-0304USA01516

PATIENT
  Age: 66 Year
  Sex: Male
  Weight: 82 kg

DRUGS (11)
  1. VIOXX [Suspect]
     Indication: OSTEOARTHRITIS
     Route: 048
     Dates: start: 20001201, end: 20010401
  2. VIOXX [Suspect]
     Route: 048
     Dates: start: 20001030
  3. VIOXX [Suspect]
     Route: 048
     Dates: start: 20000601
  4. VIOXX [Suspect]
     Indication: PAIN
     Route: 048
     Dates: start: 20001201, end: 20010401
  5. VIOXX [Suspect]
     Route: 048
     Dates: start: 20001030
  6. VIOXX [Suspect]
     Route: 048
     Dates: start: 20000601
  7. BECLOMETHASONE DIPROPIONATE [Concomitant]
     Route: 055
     Dates: start: 20000830, end: 20010101
  8. ALLEGRA [Concomitant]
     Route: 048
     Dates: start: 20001011, end: 20010101
  9. ADALAT [Concomitant]
     Route: 048
     Dates: start: 20000901, end: 20010101
  10. ZOCOR [Concomitant]
     Route: 048
     Dates: start: 20001030, end: 20010101
  11. ZANTAC [Concomitant]
     Indication: GASTROOESOPHAGEAL REFLUX DISEASE
     Route: 048
     Dates: start: 20001030, end: 20010101

REACTIONS (10)
  - ACUTE MYOCARDIAL INFARCTION [None]
  - CARDIO-RESPIRATORY ARREST [None]
  - DIZZINESS [None]
  - ELECTROMECHANICAL DISSOCIATION [None]
  - LOSS OF CONSCIOUSNESS [None]
  - MEDICATION ERROR [None]
  - NASAL DISORDER [None]
  - SEBORRHOEIC KERATOSIS [None]
  - VENTRICULAR FIBRILLATION [None]
  - VERTIGO POSITIONAL [None]
